FAERS Safety Report 21752595 (Version 1)
Quarter: 2022Q4

REPORT INFORMATION
  Report Type: Spontaneous
  Country: PL (occurrence: PL)
  Receive Date: 20221220
  Receipt Date: 20221220
  Transmission Date: 20230113
  Serious: Yes (Death, Other)
  Sender: FDA-Public Use
  Company Number: PL-RECORDATI-2022005822

PATIENT

DRUGS (4)
  1. ZOLADEX [Suspect]
     Active Substance: GOSERELIN ACETATE
     Indication: Adenocarcinoma
     Dosage: UNK, EVERY 3 MONTH
     Route: 058
     Dates: start: 202108
  2. ZOLADEX [Suspect]
     Active Substance: GOSERELIN ACETATE
     Indication: Adenocarcinoma
     Dosage: UNK
     Route: 065
  3. FLUTAMIDE [Suspect]
     Active Substance: FLUTAMIDE
     Indication: Adenocarcinoma
     Dosage: UNK
     Route: 065
  4. ELIGARD [Suspect]
     Active Substance: LEUPROLIDE ACETATE
     Indication: Adenocarcinoma
     Dosage: UNK, EVERY 3 MONTHS
     Route: 065
     Dates: start: 202108

REACTIONS (1)
  - Adenocarcinoma [Fatal]
